FAERS Safety Report 5087594-0 (Version None)
Quarter: 2006Q3

REPORT INFORMATION
  Report Type: 
  Country: None (occurrence: None)
  Receive Date: 20060823
  Receipt Date: 20060823
  Transmission Date: 20061208
  Serious: Yes (Life-Threatening, Hospitalization, Disabling, Other)
  Sender: FDA-Public Use
  Company Number: None

PATIENT
  Age: 55 Year
  Sex: Female
  Weight: 44.4525 kg

DRUGS (1)
  1. ETHAMBUTOL HYDROCHLORIDE [Suspect]
     Indication: CHRONIC OBSTRUCTIVE PULMONARY DISEASE
     Dosage: 600 MG  2X/DAY   PO
     Route: 048

REACTIONS (2)
  - BLINDNESS [None]
  - DRUG TOXICITY [None]
